FAERS Safety Report 4906357-7 (Version None)
Quarter: 2006Q1

REPORT INFORMATION
  Report Type: 
  Country: None (occurrence: None)
  Receive Date: 20060207
  Receipt Date: 20060124
  Transmission Date: 20060701
  Serious: Yes (Other)
  Sender: FDA-Public Use
  Company Number: DE200601001754

PATIENT
  Age: 75 Year
  Sex: Female

DRUGS (4)
  1. GEMZAR [Suspect]
     Indication: BREAST CANCER METASTATIC
     Dosage: 1000 MG/M2, INTRAVENOUS
     Route: 042
     Dates: start: 20050101
  2. TAXOL [Concomitant]
  3. DEXAMETHASONE [Concomitant]
  4. ZOFRAN [Concomitant]

REACTIONS (8)
  - ABSCESS [None]
  - EAR DISORDER [None]
  - ERYTHEMA [None]
  - FACE OEDEMA [None]
  - SEBACEOUS GLAND DISORDER [None]
  - SKIN EXFOLIATION [None]
  - SKIN REACTION [None]
  - SKIN WARM [None]
